FAERS Safety Report 15056717 (Version 3)
Quarter: 2018Q3

REPORT INFORMATION
  Report Type: Spontaneous
  Country: US (occurrence: US)
  Receive Date: 20180623
  Receipt Date: 20180727
  Transmission Date: 20181010
  Serious: Yes (Other)
  Sender: FDA-Public Use
  Company Number: US-009507513-1806USA010103

PATIENT
  Age: 20 Year
  Sex: Female
  Weight: 56.24 kg

DRUGS (3)
  1. NEXPLANON [Suspect]
     Active Substance: ETONOGESTREL
     Dosage: 1 IMPLANT (EVERY THREE YEARS)
     Route: 059
     Dates: start: 20170404, end: 20180619
  2. ESTRADIOL. [Concomitant]
     Active Substance: ESTRADIOL
     Indication: MENSTRUAL CYCLE MANAGEMENT
     Dosage: 1 MG (1 TABLET DAILY)
     Route: 048
     Dates: start: 20180321, end: 20180619
  3. NEXPLANON [Suspect]
     Active Substance: ETONOGESTREL
     Dosage: 1 IMPLANT (EVERY THREE YEARS)
     Route: 059
     Dates: start: 20140320, end: 20170404

REACTIONS (5)
  - Device breakage [Recovered/Resolved]
  - Device kink [Recovered/Resolved]
  - Incorrect drug administration duration [Unknown]
  - No adverse event [Unknown]
  - Device deployment issue [Recovered/Resolved]

NARRATIVE: CASE EVENT DATE: 20170404
